FAERS Safety Report 6109582-5 (Version None)
Quarter: 2009Q1

REPORT INFORMATION
  Report Type: 
  Country: None (occurrence: None)
  Receive Date: 20090310
  Receipt Date: 20090227
  Transmission Date: 20090719
  Serious: Yes (Other)
  Sender: FDA-Public Use
  Company Number: PHHY2009FR07710

PATIENT
  Age: 80 Year
  Sex: Female

DRUGS (2)
  1. EXELON [Suspect]
     Indication: DEMENTIA ALZHEIMER'S TYPE
     Dosage: 4.6MG DAILY
     Route: 062
  2. EXELON [Suspect]
     Dosage: 9.5MG DAILY
     Route: 062

REACTIONS (5)
  - CHOLINERGIC SYNDROME [None]
  - HYPERHIDROSIS [None]
  - HYPOTHERMIA [None]
  - PALLOR [None]
  - TREMOR [None]
